FAERS Safety Report 22345673 (Version 1)
Quarter: 2023Q2

REPORT INFORMATION
  Report Type: Spontaneous
  Country: US (occurrence: US)
  Receive Date: 20230519
  Receipt Date: 20230519
  Transmission Date: 20230722
  Serious: No
  Sender: FDA-Public Use
  Company Number: US-ABBVIE-4770487

PATIENT
  Sex: Female
  Weight: 52.163 kg

DRUGS (3)
  1. DEPAKOTE ER [Suspect]
     Active Substance: DIVALPROEX SODIUM
     Indication: Seizure
     Dosage: STRENGTH 500 MILLIGRAM
     Route: 048
     Dates: start: 2000, end: 202302
  2. KEPPRA [Concomitant]
     Active Substance: LEVETIRACETAM
     Indication: Seizure
  3. DIVALPROEX SODIUM [Suspect]
     Active Substance: DIVALPROEX SODIUM
     Indication: Seizure
     Dosage: STRENGTH 500 MILLIGRAM
     Route: 048
     Dates: start: 202302

REACTIONS (6)
  - Insomnia [Not Recovered/Not Resolved]
  - Skin exfoliation [Recovering/Resolving]
  - Fatigue [Not Recovered/Not Resolved]
  - Urticaria [Not Recovered/Not Resolved]
  - Skin ulcer [Not Recovered/Not Resolved]
  - Scab [Recovering/Resolving]

NARRATIVE: CASE EVENT DATE: 20230101
